FAERS Safety Report 10236205 (Version 1)
Quarter: 2014Q2

REPORT INFORMATION
  Report Type: Spontaneous
  Country: US (occurrence: US)
  Receive Date: 20140613
  Receipt Date: 20140613
  Transmission Date: 20141212
  Serious: No
  Sender: FDA-Public Use
  Company Number: US-ASTRAZENECA-2014SE39106

PATIENT
  Age: 59 Year
  Sex: Female

DRUGS (1)
  1. PULMICORT FLEXHALER [Suspect]
     Indication: ASTHMA
     Dosage: 180 UG, 1 PUFF TWO TIMES A DAY
     Route: 055
     Dates: start: 20140314

REACTIONS (2)
  - Dyspnoea [Unknown]
  - Circumstance or information capable of leading to medication error [Unknown]
